FAERS Safety Report 9707086 (Version 3)
Quarter: 2013Q4

REPORT INFORMATION
  Report Type: Report from Study
  Country: JP (occurrence: JP)
  Receive Date: 20131125
  Receipt Date: 20131223
  Transmission Date: 20140711
  Serious: No
  Sender: FDA-Public Use
  Company Number: JP-UCBSA-103840

PATIENT
  Age: 26 Year
  Sex: Male

DRUGS (11)
  1. E KEPPRA [Suspect]
     Indication: EPILEPSY
     Dosage: DOSE STRENGTH: 250 MG
     Route: 048
     Dates: start: 20110317, end: 20110523
  2. E KEPPRA [Suspect]
     Indication: EPILEPSY
     Dosage: DOSE STRENGTH:250 MG
     Route: 048
     Dates: start: 20110524, end: 20110608
  3. E KEPPRA [Suspect]
     Indication: EPILEPSY
     Dosage: DOSE STRENGTH:250 MG
     Route: 048
     Dates: start: 20110609, end: 20110622
  4. E KEPPRA [Suspect]
     Indication: EPILEPSY
     Dosage: DOSE STRENGTH:250 MG
     Route: 048
     Dates: start: 20110623
  5. ALEVIATIN [Concomitant]
     Route: 048
     Dates: start: 2000
  6. BENZALIN [Concomitant]
     Route: 048
     Dates: start: 2000
  7. DEPAKENE [Concomitant]
     Route: 048
     Dates: start: 2000
  8. MYSTAN [Concomitant]
     Route: 048
     Dates: start: 2000
  9. L-CARTIN [Concomitant]
     Route: 048
     Dates: start: 2007
  10. THYRADIN-S POWDER [Concomitant]
     Route: 048
     Dates: start: 2007
  11. GANATON [Concomitant]
     Route: 048

REACTIONS (1)
  - Secretion discharge [Recovered/Resolved]
